FAERS Safety Report 9232885 (Version 2)
Quarter: 2013Q3

REPORT INFORMATION
  Report Type: Spontaneous
  Country: US (occurrence: None)
  Receive Date: 20121031
  Receipt Date: 20130724
  Transmission Date: 20140515
  Serious: No
  Sender: FDA-Public Use
  Company Number: PHEH2012US012398

PATIENT
  Age: 45 Year
  Sex: Female
  Weight: 72.6 kg

DRUGS (12)
  1. GILENYA [Suspect]
     Route: 048
     Dates: start: 20110415
  2. DETROL (TOLTERODINE L-TARTRATE) CAPSULE, 4MG [Concomitant]
  3. RITALIN (METHYLPHENIDATE HYDROCHLORIDE) TABLET, 10MG [Concomitant]
  4. PROVENTIL (SALBUTAMOL SULFATE) [Concomitant]
  5. GABAPENTIN (GABAPENTIN) CAPSULE, 300MG [Concomitant]
  6. IBUPROFEN (IBUPROFEN) TABLET, 800MG [Concomitant]
  7. WELLBUTRIN (BUPROPION HYDROCHLORIDE) TABLET, 75MG [Concomitant]
  8. PRILOSEC (OMEPRAZOLE) CAPSULE, 20MG [Concomitant]
  9. PROZAC (FLUOXETINE HYDROCHLORIDE) CAPSULE, 20MG [Concomitant]
  10. TRAZODONE (TRAZODONE) TABLET, 150MG [Concomitant]
  11. VITAMIN D (ERGOCALCIFEROL) CAPSULE, 2000 IU [Concomitant]
  12. VITAMIN B12 (CYANOCOBALAMIN) TABLET [Concomitant]

REACTIONS (2)
  - Electrocardiogram abnormal [None]
  - Chest pain [None]
